FAERS Safety Report 22016123 (Version 1)
Quarter: 2023Q1

REPORT INFORMATION
  Report Type: Spontaneous
  Country: US (occurrence: None)
  Receive Date: 20230216
  Receipt Date: 20230216
  Transmission Date: 20230417
  Serious: No
  Sender: FDA-Public Use
  Company Number: None

PATIENT
  Age: 71 Year
  Sex: Female
  Weight: 67.31 kg

DRUGS (28)
  1. TEMOZOLOMIDE [Suspect]
     Active Substance: TEMOZOLOMIDE
     Indication: Brain neoplasm malignant
     Dosage: OTHER FREQUENCY : DAY1-5;?
     Route: 048
  2. TEMOZOLOMIDE [Suspect]
     Active Substance: TEMOZOLOMIDE
     Indication: Brain neoplasm malignant
     Dosage: OTHER FREQUENCY : DAY1-5;?
     Route: 048
  3. ACYCLOVIR [Concomitant]
     Active Substance: ACYCLOVIR
  4. AMITRIPTYLINE 1% [Concomitant]
  5. KETAMINE [Concomitant]
  6. BACTRIM DS [Concomitant]
     Active Substance: SULFAMETHOXAZOLE\TRIMETHOPRIM
  7. Calcium-Magnesium-Zinc-D3 [Concomitant]
  8. DEXAMETHASONE [Concomitant]
     Active Substance: DEXAMETHASONE
  9. EUTHYROX [Concomitant]
     Active Substance: LEVOTHYROXINE SODIUM
  10. HUMALOG [Concomitant]
     Active Substance: INSULIN LISPRO
  11. KEPPRA [Concomitant]
     Active Substance: LEVETIRACETAM
  12. LANTUS [Concomitant]
     Active Substance: INSULIN GLARGINE
  13. LATANOPROST [Concomitant]
     Active Substance: LATANOPROST
  14. LEVOTHYROXINE [Concomitant]
     Active Substance: LEVOTHYROXINE
  15. MARINOL [Concomitant]
     Active Substance: DRONABINOL
  16. METFORMIN [Concomitant]
     Active Substance: METFORMIN HYDROCHLORIDE
  17. NYSTATIN [Concomitant]
     Active Substance: NYSTATIN
  18. ONDANSETRON [Concomitant]
     Active Substance: ONDANSETRON
  19. POTASSIUM CHLORIDE [Concomitant]
     Active Substance: POTASSIUM CHLORIDE
  20. PROCHLORPERAZINE [Concomitant]
     Active Substance: PROCHLORPERAZINE
  21. REMERON [Concomitant]
     Active Substance: MIRTAZAPINE
  22. ROSUVASTATIN [Concomitant]
     Active Substance: ROSUVASTATIN
  23. TRAMADOL [Concomitant]
     Active Substance: TRAMADOL
  24. TYLENOL [Concomitant]
     Active Substance: ACETAMINOPHEN
  25. VITAMIN D3 [Concomitant]
     Active Substance: CHOLECALCIFEROL
  26. XARELTO [Concomitant]
     Active Substance: RIVAROXABAN
  27. ZOLPIDEM [Concomitant]
     Active Substance: ZOLPIDEM TARTRATE
  28. Tartrate [Concomitant]

REACTIONS (1)
  - Hospice care [None]
